FAERS Safety Report 14751747 (Version 4)
Quarter: 2018Q2

REPORT INFORMATION
  Report Type: Spontaneous
  Country: BR (occurrence: BR)
  Receive Date: 20180412
  Receipt Date: 20180514
  Transmission Date: 20180711
  Serious: Yes (Hospitalization)
  Sender: FDA-Public Use
  Company Number: BR-PFIZER INC-2018147370

PATIENT
  Age: 61 Year
  Sex: Male

DRUGS (2)
  1. SUTENT [Suspect]
     Active Substance: SUNITINIB MALATE
     Dosage: UNK
     Dates: start: 20180315, end: 20180428
  2. SUTENT [Suspect]
     Active Substance: SUNITINIB MALATE
     Dosage: UNK, FOR 14 DAYS AND PAUSED 7 DAYS
     Dates: start: 20180315, end: 20180327

REACTIONS (14)
  - Pain [Unknown]
  - Flatulence [Unknown]
  - Dyschezia [Unknown]
  - Spinal pain [Unknown]
  - Malaise [Unknown]
  - Inappropriate schedule of drug administration [Not Recovered/Not Resolved]
  - Neoplasm progression [Unknown]
  - Haematoma [Unknown]
  - Pruritus [Unknown]
  - Skin haemorrhage [Unknown]
  - Gastrointestinal disorder [Unknown]
  - Diarrhoea [Unknown]
  - Renal pain [Unknown]
  - Alopecia [Unknown]
